FAERS Safety Report 5229526-8 (Version None)
Quarter: 2007Q1

REPORT INFORMATION
  Report Type: 
  Country: None (occurrence: None)
  Receive Date: 20070201
  Receipt Date: 20070120
  Transmission Date: 20070707
  Serious: Yes (Hospitalization)
  Sender: FDA-Public Use
  Company Number: 2007SP001271

PATIENT
  Age: 60 Year
  Sex: Male

DRUGS (8)
  1. PEG-INTRON [Suspect]
     Indication: HEPATITIS C
     Dosage: SC
     Route: 058
     Dates: start: 20060702, end: 20061215
  2. RIBAVIRIN [Suspect]
     Indication: HEPATITIS C
     Dosage: PO
     Route: 048
     Dates: start: 20060702, end: 20061215
  3. BENICAR (CON.) [Concomitant]
  4. PILOCARPINE (CON.) [Concomitant]
  5. PLAVIX (CON.) [Concomitant]
  6. PROTONIX (CON.) [Concomitant]
  7. SYNTHROID (CON.) [Concomitant]
  8. VA;IUM (CON.) [Concomitant]

REACTIONS (6)
  - ABDOMINAL PAIN UPPER [None]
  - ARTHRALGIA [None]
  - BLOOD COUNT ABNORMAL [None]
  - HAEMATEMESIS [None]
  - TREATMENT NONCOMPLIANCE [None]
  - VOMITING [None]
